FAERS Safety Report 10048377 (Version 1)
Quarter: 2014Q1

REPORT INFORMATION
  Report Type: Report from Study
  Country: IE (occurrence: IE)
  Receive Date: 20140331
  Receipt Date: 20140331
  Transmission Date: 20141002
  Serious: Yes (Hospitalization)
  Sender: FDA-Public Use
  Company Number: IE-GLAXOSMITHKLINE-B0981328A

PATIENT
  Age: 76 Year
  Sex: Male

DRUGS (7)
  1. VOTRIENT [Suspect]
     Indication: RENAL CANCER
     Dosage: 800MG PER DAY
     Route: 048
     Dates: start: 20140226
  2. ZANIDIP [Concomitant]
  3. ZANTAC [Concomitant]
  4. TAMSULOSIN HYDROCHLORIDE [Concomitant]
  5. ALLOPURINOL [Concomitant]
  6. CARDICOR [Concomitant]
  7. DABIGATRAN [Concomitant]

REACTIONS (1)
  - Rectal haemorrhage [Recovering/Resolving]
